FAERS Safety Report 5884989-X (Version None)
Quarter: 2008Q3

REPORT INFORMATION
  Report Type: 
  Country: None (occurrence: None)
  Receive Date: 20080912
  Receipt Date: 20080828
  Transmission Date: 20090109
  Serious: Yes (Life-Threatening)
  Sender: FDA-Public Use
  Company Number: 2008S100302

PATIENT

DRUGS (1)
  1. CUBICIN [Suspect]

REACTIONS (2)
  - CARDIAC ARREST [None]
  - ELECTROMECHANICAL DISSOCIATION [None]
